FAERS Safety Report 6453961-3 (Version None)
Quarter: 2009Q4

REPORT INFORMATION
  Report Type: 
  Country: None (occurrence: None)
  Receive Date: 20091124
  Receipt Date: 20091110
  Transmission Date: 20100525
  Serious: Yes (Hospitalization)
  Sender: FDA-Public Use
  Company Number: FR-MYLANLABS-2009S1019478

PATIENT
  Age: 27 Year
  Sex: Male

DRUGS (7)
  1. PARACETAMOL [Suspect]
     Route: 048
     Dates: start: 20090831, end: 20090902
  2. IBUPROFENE [Suspect]
     Route: 048
     Dates: start: 20090831, end: 20090902
  3. AMODEX /00249602/ [Suspect]
     Indication: ERYSIPELAS
     Route: 048
     Dates: start: 20090831, end: 20090902
  4. PENICILLIN VK [Suspect]
     Route: 042
     Dates: start: 20090902, end: 20090906
  5. DOMPERIDONE [Suspect]
     Route: 048
     Dates: start: 20090831, end: 20090902
  6. CLAMOXYL [Suspect]
     Route: 048
     Dates: start: 20090906, end: 20090907
  7. ACUPAN [Suspect]
     Route: 042
     Dates: start: 20090903, end: 20090904

REACTIONS (1)
  - ECZEMA [None]
